FAERS Safety Report 5401063-7 (Version None)
Quarter: 2007Q3

REPORT INFORMATION
  Report Type: 
  Country: None (occurrence: None)
  Receive Date: 20070731
  Receipt Date: 20070725
  Transmission Date: 20080115
  Serious: Yes (Death, Hospitalization)
  Sender: FDA-Public Use
  Company Number: US-JNJFOC-20070706163

PATIENT
  Age: 34 Year
  Sex: Male

DRUGS (2)
  1. HALDOL [Suspect]
     Indication: AGGRESSION
     Route: 030
  2. ATIVAN [Concomitant]
     Route: 042

REACTIONS (2)
  - CARDIAC ARREST [None]
  - RENAL FAILURE [None]
